FAERS Safety Report 8326375-9 (Version None)
Quarter: 2012Q2

REPORT INFORMATION
  Report Type: 
  Country: None (occurrence: None)
  Receive Date: 20120501
  Receipt Date: 20090624
  Transmission Date: 20120825
  Serious: No
  Sender: FDA-Public Use
  Company Number: US-TEVA-2009007512

PATIENT
  Sex: Male
  Weight: 97.61 kg

DRUGS (7)
  1. ZOCOR [Concomitant]
     Indication: BLOOD CHOLESTEROL INCREASED
     Dates: start: 20040101
  2. ZYRTEC [Concomitant]
     Indication: SINUS DISORDER
     Dates: start: 20090501
  3. LUNESTA [Concomitant]
     Indication: SLEEP DISORDER
     Dates: start: 20090601
  4. NUVIGIL [Suspect]
     Indication: SLEEP APNOEA SYNDROME
     Dosage: 150 MILLIGRAM;
     Route: 048
  5. NEXIUM [Concomitant]
     Indication: GASTROOESOPHAGEAL REFLUX DISEASE
     Dates: start: 20090101
  6. CLONAZEPAM [Concomitant]
     Indication: SLEEP DISORDER
  7. FLONASE [Concomitant]
     Indication: SINUS DISORDER
     Dates: start: 20040101

REACTIONS (1)
  - DRUG INEFFECTIVE [None]
